FAERS Safety Report 14316389 (Version 4)
Quarter: 2018Q2

REPORT INFORMATION
  Report Type: Spontaneous
  Country: JP (occurrence: JP)
  Receive Date: 20171222
  Receipt Date: 20180422
  Transmission Date: 20180711
  Serious: Yes (Other)
  Sender: FDA-Public Use
  Company Number: JP-APOTEX-2017AP023166

PATIENT
  Sex: Female

DRUGS (1)
  1. PAXIL CR [Suspect]
     Active Substance: PAROXETINE HYDROCHLORIDE
     Indication: PANIC DISORDER
     Dosage: 12.5 MG, TID
     Route: 048

REACTIONS (5)
  - Exposure during pregnancy [Unknown]
  - Intentional product misuse [Unknown]
  - Abortion [Unknown]
  - Product use in unapproved indication [Unknown]
  - Metrorrhagia [Recovered/Resolved]
